FAERS Safety Report 8969333 (Version 1)
Quarter: 2012Q4

REPORT INFORMATION
  Report Type: 
  Country: GB (occurrence: GB)
  Receive Date: 20121218
  Receipt Date: 20121218
  Transmission Date: 20130627
  Serious: Yes (Hospitalization)
  Sender: FDA-Public Use
  Company Number: GB-AMGEN-GBRSP2012080623

PATIENT
  Sex: Male

DRUGS (3)
  1. ENBREL [Suspect]
     Indication: PSORIATIC ARTHROPATHY
     Dosage: 25mg 2x/week
     Route: 058
     Dates: start: 20070101
  2. LISINOPRIL [Concomitant]
     Dosage: 5 mg, qd
     Route: 048
  3. CODEINE [Concomitant]
     Dosage: UNK

REACTIONS (1)
  - Diverticulitis [Recovered/Resolved]
